FAERS Safety Report 16470955 (Version 1)
Quarter: 2019Q2

REPORT INFORMATION
  Report Type: Spontaneous
  Country: US (occurrence: US)
  Receive Date: 20190624
  Receipt Date: 20190624
  Transmission Date: 20190711
  Serious: No
  Sender: FDA-Public Use
  Company Number: US-AVEDRO-AVE-2019-0094-AE

PATIENT
  Age: 25 Year
  Sex: Male

DRUGS (3)
  1. PHOTREXA VISCOUS [Suspect]
     Active Substance: RIBOFLAVIN 5^-PHOSPHATE SODIUM
     Indication: KERATOCONUS
     Dosage: 1 DROP EVERY 2 MINUTES FOR 30 MINUTES DURING INITIAL SOAK PERIOD
     Route: 047
     Dates: start: 20190319, end: 20190319
  2. KXL SYSTEM [Suspect]
     Active Substance: DEVICE
     Indication: KERATOCONUS
     Route: 047
     Dates: start: 20190319, end: 20190319
  3. PHOTREXA VISCOUS [Suspect]
     Active Substance: RIBOFLAVIN 5^-PHOSPHATE SODIUM
     Dosage: 1 DROP EVERY 2 MINUTES FOR 30 MINUTES TOTAL DURING THE IRRADIATION PERIOD
     Route: 047
     Dates: start: 20190319, end: 20190319

REACTIONS (3)
  - Therapy cessation [Unknown]
  - No adverse event [Unknown]
  - Device use error [Unknown]

NARRATIVE: CASE EVENT DATE: 20190319
